FAERS Safety Report 8766730 (Version 2)
Quarter: 2012Q4

REPORT INFORMATION
  Report Type: 
  Country: DE (occurrence: DE)
  Receive Date: 20120904
  Receipt Date: 20121019
  Transmission Date: 20130627
  Serious: Yes (Other)
  Sender: FDA-Public Use
  Company Number: IT-MYLANLABS-2012S1017307

PATIENT
  Age: 70 Year
  Sex: Female
  Weight: 80 kg

DRUGS (1)
  1. TRIAMTERENE + HYDROCHLOROTHIAZIDE [Suspect]
     Indication: POLYURIA
     Route: 048
     Dates: start: 20101124, end: 20120730

REACTIONS (4)
  - Drug ineffective [Recovered/Resolved]
  - Hypertension [Recovered/Resolved]
  - Oedema peripheral [Recovered/Resolved]
  - Urinary retention [Recovered/Resolved]
